FAERS Safety Report 7701249-2 (Version None)
Quarter: 2011Q3

REPORT INFORMATION
  Report Type: 
  Country: None (occurrence: None)
  Receive Date: 20110822
  Receipt Date: 20110819
  Transmission Date: 20111222
  Serious: Yes (Other)
  Sender: FDA-Public Use
  Company Number: US-GLAXOSMITHKLINE-A0941730A

PATIENT
  Age: 45 Year
  Sex: Female

DRUGS (1)
  1. PROMACTA [Suspect]
     Indication: IDIOPATHIC THROMBOCYTOPENIC PURPURA
     Route: 048
     Dates: start: 20090501, end: 20110601

REACTIONS (6)
  - CONTUSION [None]
  - EPISTAXIS [None]
  - MYELOFIBROSIS [None]
  - WHITE BLOOD CELL COUNT DECREASED [None]
  - ANAEMIA [None]
  - HAEMORRHAGE [None]
